FAERS Safety Report 4595402-7 (Version None)
Quarter: 2005Q1

REPORT INFORMATION
  Report Type: 
  Country: None (occurrence: None)
  Receive Date: 20050224
  Receipt Date: 20050204
  Transmission Date: 20050727
  Serious: Yes (Hospitalization, Other)
  Sender: FDA-Public Use
  Company Number: USA050289988

PATIENT
  Age: 71 Year
  Sex: Male

DRUGS (13)
  1. ALIMTA [Suspect]
     Indication: NON-SMALL CELL LUNG CANCER
     Dosage: 500 MG/M2
     Dates: start: 20041122
  2. VITAMIN B-12 [Concomitant]
  3. FOLIC ACID [Concomitant]
  4. NITROGLYCERIN [Concomitant]
  5. LIPITOR [Concomitant]
  6. LOPRESSOR [Concomitant]
  7. NIFEDICAL XL (NIFEDIPINE PA) [Concomitant]
  8. DIOVAN [Concomitant]
  9. NOVOLIN 70/30 [Concomitant]
  10. ZESTRIL [Concomitant]
  11. PROTONIX [Concomitant]
  12. IRON [Concomitant]
  13. VITAMIN E [Concomitant]

REACTIONS (13)
  - ABDOMINAL PAIN LOWER [None]
  - ANOREXIA [None]
  - ASTHENIA [None]
  - DIARRHOEA [None]
  - GASTROINTESTINAL NECROSIS [None]
  - GENERAL PHYSICAL HEALTH DETERIORATION [None]
  - HICCUPS [None]
  - LAPAROTOMY [None]
  - MUSCLE SPASMS [None]
  - NAUSEA [None]
  - PULMONARY MASS [None]
  - VOMITING [None]
  - WEIGHT DECREASED [None]
